FAERS Safety Report 14585926 (Version 1)
Quarter: 2018Q1

REPORT INFORMATION
  Report Type: Spontaneous
  Country: US (occurrence: US)
  Receive Date: 20180301
  Receipt Date: 20180301
  Transmission Date: 20180509
  Serious: Yes (Other)
  Sender: FDA-Public Use
  Company Number: US-CIPLA LTD.-2018US08560

PATIENT

DRUGS (2)
  1. BENZTROPINE. [Suspect]
     Active Substance: BENZTROPINE
     Indication: SINUS BRADYCARDIA
  2. BENZTROPINE. [Suspect]
     Active Substance: BENZTROPINE
     Indication: ORTHOSTATIC HYPERTENSION
     Dosage: UNK
     Route: 065

REACTIONS (1)
  - Treatment failure [Unknown]
